FAERS Safety Report 20331949 (Version 3)
Quarter: 2022Q4

REPORT INFORMATION
  Report Type: Spontaneous
  Country: FR (occurrence: FR)
  Receive Date: 20220113
  Receipt Date: 20221206
  Transmission Date: 20230113
  Serious: Yes (Life-Threatening, Hospitalization)
  Sender: FDA-Public Use
  Company Number: None

PATIENT
  Age: 75 Year
  Sex: Male
  Weight: 57 kg

DRUGS (8)
  1. IBRANCE [Suspect]
     Active Substance: PALBOCICLIB
     Indication: Breast cancer male
     Dosage: 125 MG, 1X/DAY
     Route: 048
     Dates: start: 20211126, end: 20211215
  2. METFORMIN HYDROCHLORIDE [Concomitant]
     Active Substance: METFORMIN HYDROCHLORIDE
     Dosage: 500 MG, 3X/DAY (1-1-1)
  3. AMITRIPTYLINE HYDROCHLORIDE [Concomitant]
     Active Substance: AMITRIPTYLINE HYDROCHLORIDE
     Dosage: 10 TO 15 DROPS AT BEDTIME
  4. ZOLOFT [Concomitant]
     Active Substance: SERTRALINE HYDROCHLORIDE
     Dosage: 25 MG, 1X/DAY (1-0-0)
  5. NUTRIVISC [Concomitant]
     Dosage: 1 DROP, 4X/DAY IN LOWER CONJUNCTIVAL SAC
  6. MESTINON [Concomitant]
     Active Substance: PYRIDOSTIGMINE BROMIDE
     Dosage: 60 MG, 2X/DAY (1-0-1)
  7. SILODOSIN [Concomitant]
     Active Substance: SILODOSIN
     Dosage: 8 MG, 1X/DAY (0-0-1)
  8. OXYBUTYNIN [Concomitant]
     Active Substance: OXYBUTYNIN
     Dosage: 5 MG, 3X/DAY (1-1-1)

REACTIONS (4)
  - Myocardial infarction [Recovered/Resolved]
  - Coronary artery thrombosis [Recovered/Resolved]
  - Lung disorder [Recovered/Resolved]
  - Pancytopenia [Recovering/Resolving]

NARRATIVE: CASE EVENT DATE: 20211208
